FAERS Safety Report 5428849-7 (Version None)
Quarter: 2007Q3

REPORT INFORMATION
  Report Type: 
  Country: None (occurrence: None)
  Receive Date: 20070827
  Receipt Date: 20070827
  Transmission Date: 20080115
  Serious: No
  Sender: FDA-Public Use
  Company Number: None

PATIENT
  Age: 27 Year
  Sex: Male

DRUGS (1)
  1. DOXYCYCLINE 100 MG RX 132 WRITTEN ON BLUE CAPSULES [Suspect]

REACTIONS (7)
  - DIARRHOEA [None]
  - GASTRIC DISORDER [None]
  - MALAISE [None]
  - MEDICATION TAMPERING [None]
  - NAUSEA [None]
  - PHARMACEUTICAL PRODUCT COMPLAINT [None]
  - POOR QUALITY DRUG ADMINISTERED [None]
